FAERS Safety Report 23153491 (Version 1)
Quarter: 2023Q4

REPORT INFORMATION
  Report Type: Spontaneous
  Country: US (occurrence: None)
  Receive Date: 20231106
  Receipt Date: 20231106
  Transmission Date: 20240110
  Serious: Yes (Hospitalization)
  Sender: FDA-Public Use
  Company Number: None

PATIENT
  Age: 54 Year
  Sex: Female
  Weight: 53 kg

DRUGS (1)
  1. TOPOTECAN [Suspect]
     Active Substance: TOPOTECAN HYDROCHLORIDE
     Indication: Metastases to central nervous system
     Route: 037
     Dates: start: 20231002, end: 20231002

REACTIONS (6)
  - Anxiety [None]
  - Nausea [None]
  - Headache [None]
  - Fall [None]
  - Head injury [None]
  - Generalised tonic-clonic seizure [None]
